FAERS Safety Report 7985080-9 (Version None)
Quarter: 2011Q4

REPORT INFORMATION
  Report Type: 
  Country: None (occurrence: None)
  Receive Date: 20111216
  Receipt Date: 20111208
  Transmission Date: 20120403
  Serious: Yes (Hospitalization, Other)
  Sender: FDA-Public Use
  Company Number: PHHY2011BR87077

PATIENT
  Sex: Female

DRUGS (5)
  1. XOLAIR [Suspect]
     Indication: ASTHMA
     Dosage: DOSE OF AN APPLICATION EACH 15 DAYS
  2. FORMOTEROL FUMARATE [Suspect]
     Indication: ASTHMA
     Dosage: EVERY 12 HOURS
  3. NASONEX [Concomitant]
  4. CORTICOSTEROIDS [Concomitant]
  5. FLUIMICIL [Concomitant]

REACTIONS (4)
  - WHEEZING [None]
  - WEIGHT INCREASED [None]
  - FATIGUE [None]
  - ASTHMA [None]
